FAERS Safety Report 5307264-0 (Version None)
Quarter: 2007Q2

REPORT INFORMATION
  Report Type: 
  Country: None (occurrence: None)
  Receive Date: 20070425
  Receipt Date: 20070420
  Transmission Date: 20071010
  Serious: Yes (Other)
  Sender: FDA-Public Use
  Company Number: JP-JPN-A200701328

PATIENT
  Age: 11 Year
  Sex: Male
  Weight: 38 kg

DRUGS (3)
  1. RELENZA [Suspect]
     Dosage: 10MG TWICE PER DAY
     Route: 055
     Dates: start: 20070319, end: 20070319
  2. COCARL [Concomitant]
     Dosage: 200MG TWICE PER DAY
     Route: 048
     Dates: start: 20070319, end: 20070320
  3. MUCOSTA [Concomitant]
     Indication: GASTRITIS
     Dosage: 100MG TWICE PER DAY
     Route: 048
     Dates: start: 20070319, end: 20070320

REACTIONS (4)
  - ABNORMAL BEHAVIOUR [None]
  - DEPRESSED LEVEL OF CONSCIOUSNESS [None]
  - HYPERKINESIA [None]
  - HYPERTHERMIA [None]
